FAERS Safety Report 9526020 (Version 2)
Quarter: 2013Q4

REPORT INFORMATION
  Report Type: Spontaneous
  Country: ZA (occurrence: ZA)
  Receive Date: 20130916
  Receipt Date: 20131007
  Transmission Date: 20140711
  Serious: Yes (Hospitalization)
  Sender: FDA-Public Use
  Company Number: ZA-SANOFI-AVENTIS-2013SA089498

PATIENT
  Sex: Male

DRUGS (1)
  1. KETEK [Suspect]
     Indication: COUGH
     Route: 048
     Dates: start: 20130902, end: 20130905

REACTIONS (3)
  - Injury [Unknown]
  - Syncope [Recovered/Resolved]
  - Photopsia [Unknown]
